FAERS Safety Report 5573927-5 (Version None)
Quarter: 2007Q4

REPORT INFORMATION
  Report Type: 
  Country: None (occurrence: None)
  Receive Date: 20071220
  Receipt Date: 20071206
  Transmission Date: 20080405
  Serious: Yes (Hospitalization)
  Sender: FDA-Public Use
  Company Number: 021747

PATIENT
  Age: 22 Year
  Sex: Female

DRUGS (4)
  1. PROCHLORPERAZINE MALEATE(PROCHLORPERAZINE MALEATE) TABLET,10MG [Suspect]
     Indication: NAUSEA
     Dosage: 10 MG, QD, AT 6 WEEKS EGA
  2. PROMETHAZINE [Suspect]
     Indication: NAUSEA
  3. DROPERIDOL [Suspect]
     Indication: VOMITING
  4. RANITIDINE [Concomitant]

REACTIONS (22)
  - AFFECTIVE DISORDER [None]
  - AKATHISIA [None]
  - ANXIETY [None]
  - BLOOD THYROID STIMULATING HORMONE DECREASED [None]
  - DEHYDRATION [None]
  - DEPRESSION [None]
  - DIZZINESS [None]
  - DRUG EXPOSURE DURING PREGNANCY [None]
  - DRUG SCREEN POSITIVE [None]
  - DYSPNOEA [None]
  - FEELING OF BODY TEMPERATURE CHANGE [None]
  - HYPERHIDROSIS [None]
  - HYPOTENSION [None]
  - INTENTIONAL SELF-INJURY [None]
  - KETONURIA [None]
  - LUMBAR VERTEBRAL FRACTURE [None]
  - MICROCYTIC ANAEMIA [None]
  - PALPITATIONS [None]
  - PULMONARY EMBOLISM [None]
  - RESTLESSNESS [None]
  - SUICIDAL IDEATION [None]
  - TREMOR [None]
